FAERS Safety Report 4446686-7 (Version None)
Quarter: 2004Q3

REPORT INFORMATION
  Report Type: 
  Country: None (occurrence: None)
  Receive Date: 20040908
  Receipt Date: 20040826
  Transmission Date: 20050211
  Serious: Yes (Death)
  Sender: FDA-Public Use
  Company Number: 04H-163-0271620-00

PATIENT

DRUGS (1)
  1. SODIUM BICARBONATE IN PLASTIC CONTAINER [Suspect]
     Dosage: INTRAVENOUS
     Route: 042
     Dates: start: 20040101, end: 20040101

REACTIONS (2)
  - DEVICE FAILURE [None]
  - MEDICATION ERROR [None]
